FAERS Safety Report 13674811 (Version 2)
Quarter: 2017Q3

REPORT INFORMATION
  Report Type: Spontaneous
  Country: US (occurrence: US)
  Receive Date: 20170621
  Receipt Date: 20170724
  Transmission Date: 20171127
  Serious: No
  Sender: FDA-Public Use
  Company Number: US-PFIZER INC-2017266429

PATIENT
  Age: 70 Year
  Sex: Female

DRUGS (2)
  1. IBRANCE [Suspect]
     Active Substance: PALBOCICLIB
     Dosage: 125 MG, CYCLIC (1 OD, 21 ON, 7 OFF)
     Route: 048
     Dates: end: 201705
  2. IBRANCE [Suspect]
     Active Substance: PALBOCICLIB
     Indication: BREAST CANCER FEMALE
     Dosage: 125 MG, CYCLIC (ONCE A DAY, 21 DAYS ON, 7 DAYS OFF)
     Route: 048
     Dates: start: 201704

REACTIONS (3)
  - Alopecia [Unknown]
  - Lacrimation increased [Unknown]
  - Eyelid disorder [Unknown]

NARRATIVE: CASE EVENT DATE: 201705
